FAERS Safety Report 17474503 (Version 1)
Quarter: 2020Q1

REPORT INFORMATION
  Report Type: Spontaneous
  Country: US (occurrence: US)
  Receive Date: 20200228
  Receipt Date: 20200228
  Transmission Date: 20200409
  Serious: No
  Sender: FDA-Public Use
  Company Number: US-IMPRIMIS NJOF-2081076

PATIENT

DRUGS (1)
  1. MOXIFLOXACIN 5 MG/ML [Suspect]
     Active Substance: MOXIFLOXACIN
     Dates: start: 20200204

REACTIONS (1)
  - Corneal oedema [Unknown]
